FAERS Safety Report 16068414 (Version 1)
Quarter: 2019Q1

REPORT INFORMATION
  Report Type: Report from Study
  Country: US (occurrence: US)
  Receive Date: 20190313
  Receipt Date: 20190313
  Transmission Date: 20190418
  Serious: Yes (Hospitalization, Other)
  Sender: FDA-Public Use
  Company Number: US-ACTELION-A-NJ2019-186107

PATIENT
  Age: 70 Year
  Sex: Female
  Weight: 81.63 kg

DRUGS (20)
  1. LEVOTHYROXIN [Concomitant]
     Active Substance: LEVOTHYROXINE
  2. OPSUMIT [Suspect]
     Active Substance: MACITENTAN
     Indication: PULMONARY ARTERIAL HYPERTENSION
     Dosage: 10 MG, QD
     Route: 048
     Dates: start: 20190125
  3. DIGOX [Concomitant]
     Active Substance: DIGOXIN
  4. TORSEMIDE. [Concomitant]
     Active Substance: TORSEMIDE
  5. ADEMPAS [Concomitant]
     Active Substance: RIOCIGUAT
     Dosage: 1 MG, TID
     Dates: start: 201902
  6. ESCITALOPRAM [Concomitant]
     Active Substance: ESCITALOPRAM OXALATE
  7. JANUVIA [Concomitant]
     Active Substance: SITAGLIPTIN PHOSPHATE
  8. UPTRAVI [Suspect]
     Active Substance: SELEXIPAG
     Indication: PULMONARY ARTERIAL HYPERTENSION
     Dosage: 600 MCG, BID
     Route: 048
  9. ATORVASTATIN [Concomitant]
     Active Substance: ATORVASTATIN
  10. INCRUSE ELLIPTA [Concomitant]
     Active Substance: UMECLIDINIUM BROMIDE
     Route: 055
  11. UPTRAVI [Suspect]
     Active Substance: SELEXIPAG
     Dosage: 400 MCG, BID
     Route: 048
  12. LANTUS [Concomitant]
     Active Substance: INSULIN GLARGINE
  13. LOSARTAN. [Concomitant]
     Active Substance: LOSARTAN
  14. POTASSIUM CHLORIDE. [Concomitant]
     Active Substance: POTASSIUM CHLORIDE
  15. SPIRONOLACTONE. [Concomitant]
     Active Substance: SPIRONOLACTONE
  16. TRAZODONE [Concomitant]
     Active Substance: TRAZODONE HYDROCHLORIDE
  17. AMLODIPINE [Concomitant]
     Active Substance: AMLODIPINE BESYLATE
  18. BREO ELLIPTA [Concomitant]
     Active Substance: FLUTICASONE FUROATE\VILANTEROL TRIFENATATE
  19. CEFUROXIME. [Concomitant]
     Active Substance: CEFUROXIME
  20. HUMALOG [Concomitant]
     Active Substance: INSULIN LISPRO

REACTIONS (13)
  - Pulmonary arterial hypertension [Recovered/Resolved]
  - Fluid retention [Unknown]
  - Decreased appetite [Unknown]
  - Abdominal distension [Unknown]
  - Right ventricular failure [Unknown]
  - Nasal congestion [Not Recovered/Not Resolved]
  - Headache [Unknown]
  - Incontinence [Unknown]
  - Oedema peripheral [Unknown]
  - Hepatic fibrosis [Unknown]
  - Dyspnoea [Recovered/Resolved]
  - Urinary retention [Unknown]
  - Treatment noncompliance [Unknown]

NARRATIVE: CASE EVENT DATE: 20190208
